FAERS Safety Report 4267031-6 (Version None)
Quarter: 2004Q1

REPORT INFORMATION
  Report Type: 
  Country: None (occurrence: None)
  Receive Date: 20040107
  Receipt Date: 20031230
  Transmission Date: 20041129
  Serious: Yes (Hospitalization)
  Sender: FDA-Public Use
  Company Number: 2003UW08176

PATIENT
  Age: 14 Year
  Sex: Male
  Weight: 23.6778 kg

DRUGS (4)
  1. SEROQUEL [Suspect]
     Dosage: 300 MG DAILY PO
     Route: 048
  2. DEPAKOTE [Concomitant]
  3. TYLENOL [Concomitant]
  4. MOTRIN [Concomitant]

REACTIONS (12)
  - ABSCESS [None]
  - ARTHRITIS BACTERIAL [None]
  - AUTONOMIC NERVOUS SYSTEM IMBALANCE [None]
  - BETA HAEMOLYTIC STREPTOCOCCAL INFECTION [None]
  - BLOOD CULTURE POSITIVE [None]
  - CARDIOMEGALY [None]
  - EMPYEMA [None]
  - NEUROLEPTIC MALIGNANT SYNDROME [None]
  - OSTEOMYELITIS [None]
  - PERICARDIAL EFFUSION [None]
  - RED BLOOD CELL SEDIMENTATION RATE INCREASED [None]
  - WHITE BLOOD CELL COUNT INCREASED [None]
